FAERS Safety Report 19839466 (Version 6)
Quarter: 2022Q4

REPORT INFORMATION
  Report Type: Report from Study
  Country: US (occurrence: None)
  Receive Date: 20210916
  Receipt Date: 20221121
  Transmission Date: 20230113
  Serious: Yes (Other)
  Sender: FDA-Public Use
  Company Number: US-MERCK HEALTHCARE KGAA-9264608

PATIENT
  Sex: Male

DRUGS (3)
  1. REBIF [Suspect]
     Active Substance: INTERFERON BETA-1A
     Indication: Multiple sclerosis
     Dosage: REBIJECT II/MANUAL
     Route: 058
     Dates: start: 20110606
  2. COVID-19 VACCINE [Concomitant]
     Indication: COVID-19 immunisation
     Dosage: FIRST DOSE
  3. COVID-19 VACCINE [Concomitant]
     Dosage: SECOND DOSE

REACTIONS (3)
  - Prostatomegaly [Not Recovered/Not Resolved]
  - Haemorrhage urinary tract [Unknown]
  - White blood cell count increased [Unknown]
